FAERS Safety Report 6068963-9 (Version None)
Quarter: 2009Q1

REPORT INFORMATION
  Report Type: 
  Country: None (occurrence: None)
  Receive Date: 20090206
  Receipt Date: 20090128
  Transmission Date: 20090719
  Serious: Yes (Hospitalization)
  Sender: FDA-Public Use
  Company Number: PHHO2009JP00481

PATIENT

DRUGS (19)
  1. CERTICAN [Suspect]
     Indication: RENAL TRANSPLANT
     Dosage: 1.5 MG
     Route: 048
     Dates: start: 20080807, end: 20080812
  2. CERTICAN [Suspect]
     Dosage: 3 MG
     Route: 048
     Dates: start: 20080813, end: 20080817
  3. CERTICAN [Suspect]
     Dosage: 2 MG
     Route: 048
     Dates: start: 20080818, end: 20081020
  4. CERTICAN [Suspect]
     Dosage: 1.5 MG
     Route: 048
     Dates: start: 20081021
  5. NEORAL [Suspect]
     Dosage: 100 MG
     Route: 048
     Dates: start: 20081217
  6. NEORAL [Suspect]
     Dosage: UNK
     Route: 048
     Dates: start: 20080805
  7. ORADOL [Suspect]
     Dosage: UNK
     Route: 048
     Dates: start: 20090115, end: 20090118
  8. MEDROL [Suspect]
     Indication: RENAL TRANSPLANT
     Dosage: 2 MG
     Route: 048
     Dates: start: 20080815
  9. MEDROL [Suspect]
     Dosage: 2 MG
     Route: 048
     Dates: start: 20081107, end: 20090119
  10. MEDROL [Suspect]
     Dosage: 4 MG
     Route: 048
     Dates: start: 20090120
  11. PANSPORIN [Suspect]
     Dosage: UNK
     Dates: start: 20090113, end: 20090118
  12. NORVASC [Concomitant]
     Indication: HYPERTENSION
     Dosage: UNK
     Dates: start: 20081007
  13. TAGAMET [Concomitant]
  14. ZOVIRAX [Concomitant]
  15. BAKTAR [Concomitant]
  16. DALACIN [Concomitant]
  17. ISODINE [Concomitant]
  18. NOVOLIN [Concomitant]
  19. MAGNESIUM OXIDE [Concomitant]

REACTIONS (12)
  - ARTHRALGIA [None]
  - CHILLS [None]
  - HEPATIC ENZYME INCREASED [None]
  - MUSCLE HAEMORRHAGE [None]
  - NASOPHARYNGITIS [None]
  - PAIN IN EXTREMITY [None]
  - PHARYNGEAL ERYTHEMA [None]
  - PROCEDURAL PAIN [None]
  - PROTEIN URINE PRESENT [None]
  - PYREXIA [None]
  - STEROID WITHDRAWAL SYNDROME [None]
  - THIRST [None]
